FAERS Safety Report 20531949 (Version 1)
Quarter: 2022Q1

REPORT INFORMATION
  Report Type: Spontaneous
  Country: CN (occurrence: CN)
  Receive Date: 20220301
  Receipt Date: 20220301
  Transmission Date: 20220423
  Serious: Yes (Other)
  Sender: FDA-Public Use
  Company Number: CN-PFIZER INC-202200284809

PATIENT
  Age: 72 Year
  Sex: Male
  Weight: 50 kg

DRUGS (1)
  1. VFEND [Suspect]
     Active Substance: VORICONAZOLE
     Indication: Pneumonia fungal
     Dosage: 200 MG, 2X/DAY
     Route: 048
     Dates: start: 20220127, end: 20220129

REACTIONS (3)
  - Hallucination [Recovering/Resolving]
  - Xanthopsia [Recovering/Resolving]
  - Disorganised speech [Recovering/Resolving]

NARRATIVE: CASE EVENT DATE: 20220129
